FAERS Safety Report 11004839 (Version 1)
Quarter: 2015Q2

REPORT INFORMATION
  Report Type: Spontaneous
  Country: DE (occurrence: DE)
  Receive Date: 20150409
  Receipt Date: 20150409
  Transmission Date: 20150821
  Serious: Yes (Other)
  Sender: FDA-Public Use
  Company Number: GXKR2015DE001550

PATIENT
  Sex: Female
  Weight: 60 kg

DRUGS (4)
  1. VALSARTAN HEXAL COMP [Suspect]
     Active Substance: VALSARTAN
     Indication: HYPERTENSION
     Dosage: 12.5 MG HYDROCHLOROTHIAZIDE/320 MG VALSARTAN ONCE PER DAY
     Route: 048
     Dates: start: 201411
  2. ASPIRIN. [Concomitant]
     Active Substance: ASPIRIN
     Dosage: 100 MG, QD
  3. MOXONIDIN [Concomitant]
     Active Substance: MOXONIDINE
  4. RANEXA [Concomitant]
     Active Substance: RANOLAZINE
     Dosage: UNK
     Dates: start: 201405

REACTIONS (4)
  - Hypertension [Unknown]
  - Rash generalised [Unknown]
  - Oedema peripheral [Unknown]
  - Drug ineffective [Unknown]

NARRATIVE: CASE EVENT DATE: 20150203
